FAERS Safety Report 10085072 (Version 2)
Quarter: 2014Q2

REPORT INFORMATION
  Report Type: Spontaneous
  Country: US (occurrence: US)
  Receive Date: 20140417
  Receipt Date: 20140417
  Transmission Date: 20141212
  Serious: Yes (Other)
  Sender: FDA-Public Use
  Company Number: US-ABBVIE-13P-163-1098749-00

PATIENT
  Sex: Female
  Weight: 99.88 kg

DRUGS (3)
  1. SYNTHROID [Suspect]
     Indication: THYROIDECTOMY
     Dates: start: 2001, end: 2001
  2. SYNTHROID [Suspect]
     Indication: THYROIDECTOMY
     Dates: start: 2013, end: 2014
  3. UNSPECIFIED MEDICATIONS [Concomitant]
     Indication: PRODUCT USED FOR UNKNOWN INDICATION

REACTIONS (34)
  - Thyroid disorder [Unknown]
  - Thyroid function test abnormal [Unknown]
  - Dyspnoea [Unknown]
  - Eyelid function disorder [Unknown]
  - Exophthalmos [Unknown]
  - Eyelid disorder [Unknown]
  - Blindness [Unknown]
  - Oesophageal disorder [Unknown]
  - Drug ineffective [Unknown]
  - Insomnia [Unknown]
  - Adverse drug reaction [Unknown]
  - Anger [Unknown]
  - Dysphonia [Unknown]
  - Dysphonia [Unknown]
  - Nervousness [Unknown]
  - Fatigue [Unknown]
  - Feeling hot [Not Recovered/Not Resolved]
  - Hyperhidrosis [Not Recovered/Not Resolved]
  - Malaise [Not Recovered/Not Resolved]
  - Diabetes mellitus [Not Recovered/Not Resolved]
  - Hypophagia [Unknown]
  - Parosmia [Unknown]
  - Gastric disorder [Unknown]
  - Weight decreased [Unknown]
  - Hypophagia [Unknown]
  - Dysgeusia [Unknown]
  - Pruritus [Unknown]
  - Hypoaesthesia oral [Unknown]
  - Hypoaesthesia [Unknown]
  - Nail growth abnormal [Unknown]
  - Dysphagia [Unknown]
  - Hypoaesthesia [Unknown]
  - Hypoaesthesia [Unknown]
  - Unevaluable event [Unknown]
